FAERS Safety Report 6038477-0 (Version None)
Quarter: 2009Q1

REPORT INFORMATION
  Report Type: 
  Country: None (occurrence: None)
  Receive Date: 20090113
  Receipt Date: 20090113
  Transmission Date: 20090719
  Serious: Yes (Hospitalization)
  Sender: FDA-Public Use
  Company Number: None

PATIENT
  Age: 85 Year
  Sex: Male

DRUGS (2)
  1. METOCLOPRAMIDE [Suspect]
     Indication: NAUSEA
     Dates: end: 20081019
  2. METOCLOPRAMIDE [Suspect]
     Indication: VOMITING
     Dates: end: 20081019

REACTIONS (1)
  - MENTAL STATUS CHANGES [None]
